FAERS Safety Report 7406579-X (Version None)
Quarter: 2011Q2

REPORT INFORMATION
  Report Type: 
  Country: None (occurrence: None)
  Receive Date: 20110401
  Receipt Date: 20110323
  Transmission Date: 20111010
  Serious: Yes (Other)
  Sender: FDA-Public Use
  Company Number: 201110301

PATIENT
  Sex: Male

DRUGS (1)
  1. LIORESAL INTRATHECAL(BACLOFEN INJECTION) 2000 MCG/ML [Suspect]
     Indication: MUSCLE SPASTICITY
     Dosage: 473.6 MCG, DAILY, INTRATHECAL
     Route: 037

REACTIONS (3)
  - POCKET EROSION [None]
  - STAPHYLOCOCCAL INFECTION [None]
  - DEVICE RELATED INFECTION [None]
